FAERS Safety Report 4689700-6 (Version None)
Quarter: 2005Q2

REPORT INFORMATION
  Report Type: 
  Country: None (occurrence: None)
  Receive Date: 20050613
  Receipt Date: 20050613
  Transmission Date: 20051028
  Serious: Yes (Other)
  Sender: FDA-Public Use
  Company Number: None

PATIENT
  Sex: Female
  Weight: 16.3295 kg

DRUGS (1)
  1. CHILDREN'S MOTRIN [Suspect]
     Indication: PYREXIA
     Dosage: 150 MG ONE  DOSE ORAL
     Route: 048
     Dates: start: 20050609, end: 20050609

REACTIONS (2)
  - EYE PRURITUS [None]
  - EYELID OEDEMA [None]
